FAERS Safety Report 12682993 (Version 1)
Quarter: 2016Q3

REPORT INFORMATION
  Report Type: Spontaneous
  Country: US (occurrence: None)
  Receive Date: 20160824
  Receipt Date: 20160824
  Transmission Date: 20161109
  Serious: No
  Sender: FDA-Public Use
  Company Number: None

PATIENT
  Age: 54 Year
  Sex: Male
  Weight: 76.2 kg

DRUGS (8)
  1. TRAVATAN Z [Suspect]
     Active Substance: TRAVOPROST
     Indication: GLAUCOMA
     Route: 047
     Dates: start: 20160608, end: 20160823
  2. CRESTOR [Concomitant]
     Active Substance: ROSUVASTATIN CALCIUM
  3. KLOR-CON [Concomitant]
     Active Substance: POTASSIUM CHLORIDE
  4. METFORMIN [Concomitant]
     Active Substance: METFORMIN HYDROCHLORIDE
  5. CHLORTHALIDONE. [Concomitant]
     Active Substance: CHLORTHALIDONE
  6. COQ10 [Concomitant]
     Active Substance: UBIDECARENONE
  7. ONE-A-DAY MEN 50+ [Concomitant]
  8. OCUVITE 50+ [Concomitant]

REACTIONS (3)
  - Abdominal pain upper [None]
  - Blood urine present [None]
  - Flatulence [None]

NARRATIVE: CASE EVENT DATE: 20160822
